FAERS Safety Report 14110864 (Version 2)
Quarter: 2017Q4

REPORT INFORMATION
  Report Type: Report from Study
  Country: PH (occurrence: PH)
  Receive Date: 20171020
  Receipt Date: 20171027
  Transmission Date: 20180321
  Serious: Yes (Hospitalization, Other)
  Sender: FDA-Public Use
  Company Number: PHHY2017PH137348

PATIENT
  Age: 79 Year
  Sex: Female

DRUGS (2)
  1. CARNICOR [Concomitant]
     Indication: CARDIAC FAILURE
     Dosage: 10 ML, QD
     Route: 065
     Dates: start: 20170928
  2. ENTRESTO [Suspect]
     Active Substance: SACUBITRIL\VALSARTAN
     Indication: CARDIAC FAILURE
     Dosage: 200 MG, BID
     Route: 048
     Dates: start: 20170126

REACTIONS (11)
  - Fluid retention [Unknown]
  - Pulmonary valve incompetence [Unknown]
  - Gait disturbance [Unknown]
  - Oedema peripheral [Recovered/Resolved]
  - Dyspnoea [Recovered/Resolved]
  - Angina pectoris [Unknown]
  - Pericardial effusion [Unknown]
  - Hyponatraemia [Unknown]
  - Pulmonary hypertension [Unknown]
  - Joint swelling [Recovered/Resolved]
  - Angioedema [Unknown]

NARRATIVE: CASE EVENT DATE: 20170825
